FAERS Safety Report 25312829 (Version 1)
Quarter: 2025Q2

REPORT INFORMATION
  Report Type: Spontaneous
  Country: AT (occurrence: AT)
  Receive Date: 20250514
  Receipt Date: 20250514
  Transmission Date: 20250717
  Serious: Yes (Other)
  Sender: PFIZER
  Company Number: None

PATIENT
  Age: 46 Year
  Sex: Female

DRUGS (1)
  1. ARTHROTEC [Suspect]
     Active Substance: DICLOFENAC SODIUM\MISOPROSTOL
     Dates: start: 20250502

REACTIONS (8)
  - Sudden onset of sleep [Unknown]
  - Fatigue [Unknown]
  - Diarrhoea [Unknown]
  - Headache [Unknown]
  - Heavy menstrual bleeding [Unknown]
  - Abdominal pain [Unknown]
  - Eructation [Unknown]
  - Brain fog [Unknown]

NARRATIVE: CASE EVENT DATE: 20250502
